FAERS Safety Report 6902916-0 (Version None)
Quarter: 2010Q3

REPORT INFORMATION
  Report Type: 
  Country: None (occurrence: None)
  Receive Date: 20100803
  Receipt Date: 20080726
  Transmission Date: 20110219
  Serious: No
  Sender: FDA-Public Use
  Company Number: US-PFIZER INC-2008063196

PATIENT
  Sex: Male
  Weight: 77.272 kg

DRUGS (3)
  1. LYRICA [Suspect]
     Indication: NEURALGIA
     Dates: start: 20080722
  2. DRUG, UNSPECIFIED [Concomitant]
  3. VITAMIN TAB [Concomitant]

REACTIONS (2)
  - CONSTIPATION [None]
  - DIZZINESS [None]
